APPROVED DRUG PRODUCT: PREDNISOLONE
Active Ingredient: PREDNISOLONE
Strength: 5MG
Dosage Form/Route: TABLET;ORAL
Application: A080325 | Product #001
Applicant: PUREPAC PHARMACEUTICAL CO
Approved: Approved Prior to Jan 1, 1982 | RLD: No | RS: No | Type: DISCN